FAERS Safety Report 5524216-6 (Version None)
Quarter: 2007Q4

REPORT INFORMATION
  Report Type: 
  Country: None (occurrence: None)
  Receive Date: 20071121
  Receipt Date: 20071112
  Transmission Date: 20080405
  Serious: Yes (Hospitalization)
  Sender: FDA-Public Use
  Company Number: KR-PFIZER INC-2007077841

PATIENT
  Sex: Male

DRUGS (1)
  1. CHAMPIX [Suspect]
     Indication: SMOKING CESSATION THERAPY
     Route: 048

REACTIONS (5)
  - ABNORMAL DREAMS [None]
  - ANXIETY [None]
  - MUSCLE SPASMS [None]
  - NIGHTMARE [None]
  - TRANSIENT ISCHAEMIC ATTACK [None]
